FAERS Safety Report 24307555 (Version 1)
Quarter: 2024Q3

REPORT INFORMATION
  Report Type: Spontaneous
  Country: US (occurrence: US)
  Receive Date: 20240911
  Receipt Date: 20240911
  Transmission Date: 20241016
  Serious: Yes (Life-Threatening, Hospitalization)
  Sender: PFIZER
  Company Number: US-PFIZER INC-202400253471

PATIENT
  Age: 57 Year
  Sex: Female

DRUGS (1)
  1. PAXLOVID [Suspect]
     Active Substance: NIRMATRELVIR\RITONAVIR
     Indication: COVID-19 treatment
     Dosage: STANDARD
     Dates: start: 20240830, end: 20240903

REACTIONS (1)
  - Illness [Recovering/Resolving]

NARRATIVE: CASE EVENT DATE: 20240903
